FAERS Safety Report 5725929-3 (Version None)
Quarter: 2008Q2

REPORT INFORMATION
  Report Type: 
  Country: None (occurrence: None)
  Receive Date: 20080502
  Receipt Date: 20080422
  Transmission Date: 20081010
  Serious: Yes (Death, Other)
  Sender: FDA-Public Use
  Company Number: HQWYE258526OCT05

PATIENT
  Sex: Female

DRUGS (5)
  1. PREMPRO [Suspect]
  2. OGEN [Suspect]
  3. ESTRADIOL [Suspect]
  4. PREMARIN [Suspect]
  5. PROVERA [Suspect]

REACTIONS (1)
  - OVARIAN CANCER METASTATIC [None]
